FAERS Safety Report 9624619 (Version 1)
Quarter: 2013Q4

REPORT INFORMATION
  Report Type: Spontaneous
  Country: MX (occurrence: MX)
  Receive Date: 20131015
  Receipt Date: 20131015
  Transmission Date: 20140711
  Serious: Yes (Death)
  Sender: FDA-Public Use
  Company Number: MX-PFIZER INC-2013295039

PATIENT
  Age: 95 Year
  Sex: Female

DRUGS (1)
  1. NORVAS [Suspect]
     Route: 048

REACTIONS (1)
  - Death [Fatal]
